FAERS Safety Report 7009985-0 (Version None)
Quarter: 2010Q3

REPORT INFORMATION
  Report Type: 
  Country: None (occurrence: None)
  Receive Date: 20100923
  Receipt Date: 20100913
  Transmission Date: 20110219
  Serious: Yes (Hospitalization)
  Sender: FDA-Public Use
  Company Number: US-SANOFI-AVENTIS-2010SA053633

PATIENT
  Age: 70 Year
  Sex: Male
  Weight: 75 kg

DRUGS (11)
  1. LASIX [Suspect]
     Route: 048
     Dates: start: 20080201, end: 20090625
  2. BLINDED THERAPY [Suspect]
     Route: 065
     Dates: start: 20081006, end: 20090625
  3. LISINOPRIL [Concomitant]
     Route: 048
     Dates: end: 20090626
  4. METOPROLOL TARTRATE [Concomitant]
     Route: 065
     Dates: end: 20090626
  5. ISOSORBIDE MONONITRATE [Concomitant]
  6. VALSARTAN [Concomitant]
  7. ACETYLSALICYLIC ACID [Concomitant]
  8. THYRAX [Concomitant]
  9. METFORMIN [Concomitant]
  10. SPIRIVA [Concomitant]
  11. EFEXOR /USA/ [Concomitant]

REACTIONS (4)
  - CARDIAC FAILURE [None]
  - DEHYDRATION [None]
  - MALAISE [None]
  - RENAL IMPAIRMENT [None]
